FAERS Safety Report 13750980 (Version 1)
Quarter: 2017Q3

REPORT INFORMATION
  Report Type: Spontaneous
  Country: US (occurrence: US)
  Receive Date: 20170713
  Receipt Date: 20170713
  Transmission Date: 20171127
  Serious: No
  Sender: FDA-Public Use
  Company Number: US-ASTELLAS-2017US008962

PATIENT
  Sex: Female

DRUGS (1)
  1. MYRBETRIQ [Suspect]
     Active Substance: MIRABEGRON
     Indication: NOCTURIA
     Route: 048
     Dates: end: 20170321

REACTIONS (5)
  - Intentional product misuse [Unknown]
  - Drug effect incomplete [Unknown]
  - Fall [Unknown]
  - Malaise [Unknown]
  - Dizziness [Unknown]
